FAERS Safety Report 15976538 (Version 1)
Quarter: 2019Q1

REPORT INFORMATION
  Report Type: Spontaneous
  Country: SG (occurrence: SG)
  Receive Date: 20190218
  Receipt Date: 20190218
  Transmission Date: 20190418
  Serious: Yes (Other)
  Sender: FDA-Public Use
  Company Number: SG-B.I. PHARMACEUTICALS,INC./RIDGEFIELD-2019-BI-006307

PATIENT

DRUGS (1)
  1. JARDIANCE [Suspect]
     Active Substance: EMPAGLIFLOZIN
     Indication: DIABETES MELLITUS
     Route: 065

REACTIONS (2)
  - Acute kidney injury [Recovered/Resolved]
  - Hyperkalaemia [Recovered/Resolved]
